FAERS Safety Report 23629178 (Version 1)
Quarter: 2024Q1

REPORT INFORMATION
  Report Type: Spontaneous
  Country: FR (occurrence: FR)
  Receive Date: 20240313
  Receipt Date: 20240313
  Transmission Date: 20240409
  Serious: Yes (Hospitalization)
  Sender: FDA-Public Use
  Company Number: None

PATIENT

DRUGS (2)
  1. SUBUTEX [Suspect]
     Active Substance: BUPRENORPHINE HYDROCHLORIDE
     Indication: Product used for unknown indication
     Dosage: 2 MILLIGRAM, TID
     Route: 045
     Dates: start: 2004
  2. ALCOHOL [Suspect]
     Active Substance: ALCOHOL
     Indication: Product used for unknown indication
     Dosage: 32 SU, QD
     Route: 048
     Dates: start: 2006

REACTIONS (3)
  - Product use issue [Recovered/Resolved]
  - Drug abuse [Recovering/Resolving]
  - Intentional product misuse [Recovered/Resolved]

NARRATIVE: CASE EVENT DATE: 19970101
